FAERS Safety Report 8503945-6 (Version None)
Quarter: 2012Q3

REPORT INFORMATION
  Report Type: 
  Country: None (occurrence: None)
  Receive Date: 20120711
  Receipt Date: 20120628
  Transmission Date: 20120928
  Serious: Yes (Other)
  Sender: FDA-Public Use
  Company Number: TR-MYLANLABS-2012S1013286

PATIENT
  Sex: Male

DRUGS (6)
  1. IBUPROFEN [Suspect]
     Route: 042
  2. NETILMICIN SULFATE [Concomitant]
     Route: 065
  3. CALCIUM [Concomitant]
     Route: 065
  4. AMPICILLIN [Concomitant]
     Route: 065
  5. IBUPROFEN [Suspect]
     Indication: PATENT DUCTUS ARTERIOSUS
     Route: 042
  6. FLUCONAZOLE [Concomitant]
     Route: 065

REACTIONS (3)
  - GASTROINTESTINAL HAEMORRHAGE [None]
  - HYPOTONIA [None]
  - TACHYCARDIA [None]
